FAERS Safety Report 24113352 (Version 1)
Quarter: 2024Q3

REPORT INFORMATION
  Report Type: Spontaneous
  Country: FR (occurrence: FR)
  Receive Date: 20240719
  Receipt Date: 20240719
  Transmission Date: 20241016
  Serious: Yes (Disabling)
  Sender: TEVA
  Company Number: None

PATIENT
  Age: 15 Year
  Sex: Male
  Weight: 38.1 kg

DRUGS (22)
  1. METHOTREXATE [Suspect]
     Active Substance: METHOTREXATE
     Indication: B-cell lymphoma
     Dosage: TIME INTERVAL: TOTAL
     Route: 042
     Dates: start: 20231203, end: 20231203
  2. METHOTREXATE [Suspect]
     Active Substance: METHOTREXATE
     Indication: B-cell lymphoma
     Dosage: TIME INTERVAL: TOTAL
     Route: 037
     Dates: start: 20231204, end: 20231204
  3. METHOTREXATE [Suspect]
     Active Substance: METHOTREXATE
     Indication: B-cell lymphoma
     Dosage: TIME INTERVAL: 1 TOTAL
     Route: 042
     Dates: start: 20231223, end: 20231223
  4. METHOTREXATE [Suspect]
     Active Substance: METHOTREXATE
     Indication: B-cell lymphoma
     Dosage: TIME INTERVAL: TOTAL
     Route: 037
     Dates: start: 20231224, end: 20231224
  5. HYDROCORTISONE [Concomitant]
     Active Substance: HYDROCORTISONE\HYDROCORTISONE ACETATE
     Indication: Sepsis
     Dosage: TIME INTERVAL: TOTAL
     Route: 037
     Dates: start: 20231204, end: 20231224
  6. CYCLOPHOSPHAMIDE [Suspect]
     Active Substance: CYCLOPHOSPHAMIDE
     Indication: B-cell lymphoma
     Route: 042
     Dates: start: 20231204, end: 20231207
  7. CYCLOPHOSPHAMIDE [Suspect]
     Active Substance: CYCLOPHOSPHAMIDE
     Indication: B-cell lymphoma
     Dosage: TIME INTERVAL: TOTAL
     Route: 042
     Dates: start: 20231125, end: 20231125
  8. VANCOMYCIN [Suspect]
     Active Substance: VANCOMYCIN
     Indication: Sepsis
     Route: 042
     Dates: start: 20240218
  9. MEROPENEM [Suspect]
     Active Substance: MEROPENEM
     Indication: Sepsis
     Dosage: MEROPENEM ANHYDRE
     Route: 042
     Dates: start: 20240217, end: 20240226
  10. DOXORUBICIN [Suspect]
     Active Substance: DOXORUBICIN
     Indication: B-cell lymphoma
     Dosage: TIME INTERVAL: TOTAL
     Route: 042
     Dates: start: 20231224, end: 20231224
  11. DOXORUBICIN [Suspect]
     Active Substance: DOXORUBICIN
     Indication: B-cell lymphoma
     Dosage: TIME INTERVAL: TOTAL
     Route: 042
     Dates: start: 20231204, end: 20231204
  12. CYTARABINE [Suspect]
     Active Substance: CYTARABINE
     Indication: B-cell lymphoma
     Route: 042
     Dates: start: 20240205, end: 20240206
  13. CYTARABINE [Suspect]
     Active Substance: CYTARABINE
     Indication: B-cell lymphoma
     Route: 042
     Dates: start: 20240113, end: 20240114
  14. CYTARABINE [Suspect]
     Active Substance: CYTARABINE
     Indication: B-cell lymphoma
     Route: 042
     Dates: start: 20240114, end: 20240115
  15. ETOPOSIDE [Suspect]
     Active Substance: ETOPOSIDE
     Indication: B-cell lymphoma
     Dosage: ETOPOSIDE PHOSPHATE
     Route: 042
     Dates: start: 20240203, end: 20240205
  16. ETOPOSIDE [Suspect]
     Active Substance: ETOPOSIDE
     Indication: B-cell lymphoma
     Dosage: ETOPOSIDE PHOSPHATE
     Route: 042
     Dates: start: 20240115, end: 20240117
  17. RITUXIMAB [Suspect]
     Active Substance: RITUXIMAB
     Indication: B-cell lymphoma
     Dosage: RITUXIMAB (MAMMAL/HAMSTER/CHO CELLS)
     Route: 042
     Dates: start: 20231220, end: 20231220
  18. RITUXIMAB [Suspect]
     Active Substance: RITUXIMAB
     Indication: B-cell lymphoma
     Dosage: RITUXIMAB (MAMMAL/HAMSTER/CHO CELLS)
     Route: 042
     Dates: start: 20240112, end: 20240112
  19. VINCRISTINE [Suspect]
     Active Substance: VINCRISTINE
     Indication: B-cell lymphoma
     Dosage: TIME INTERVAL: TOTAL: VINCRISTINE SULFATE
     Route: 042
     Dates: start: 20231223, end: 20231223
  20. VINCRISTINE [Suspect]
     Active Substance: VINCRISTINE
     Indication: B-cell lymphoma
     Dosage: TIME INTERVAL: TOTAL: VINCRISTINE SULFATE
     Route: 042
     Dates: start: 20231125, end: 20231125
  21. VINCRISTINE [Suspect]
     Active Substance: VINCRISTINE
     Indication: B-cell lymphoma
     Dosage: TIME INTERVAL: TOTAL: VINCRISTINE SULFATE
     Route: 042
     Dates: start: 20231203, end: 20231203
  22. AMIKACIN [Suspect]
     Active Substance: AMIKACIN
     Indication: Sepsis
     Route: 042
     Dates: start: 20240217, end: 20240218

REACTIONS (1)
  - Quadriparesis [Not Recovered/Not Resolved]

NARRATIVE: CASE EVENT DATE: 20240219
